FAERS Safety Report 18370038 (Version 1)
Quarter: 2020Q4

REPORT INFORMATION
  Report Type: Report from Study
  Country: FR (occurrence: FR)
  Receive Date: 20201012
  Receipt Date: 20201012
  Transmission Date: 20210114
  Serious: Yes (Other)
  Sender: FDA-Public Use
  Company Number: FR-EMD SERONO-9190244

PATIENT
  Age: 37 Year
  Sex: Female

DRUGS (1)
  1. OVITRELLE [Suspect]
     Active Substance: CHORIOGONADOTROPIN ALFA
     Indication: PRODUCT USED FOR UNKNOWN INDICATION

REACTIONS (3)
  - Therapeutic response decreased [Unknown]
  - Vein rupture [Unknown]
  - Haemorrhage [Unknown]

NARRATIVE: CASE EVENT DATE: 202009
